FAERS Safety Report 8028820-5 (Version None)
Quarter: 2012Q1

REPORT INFORMATION
  Report Type: 
  Country: None (occurrence: None)
  Receive Date: 20120106
  Receipt Date: 20120103
  Transmission Date: 20120608
  Serious: Yes (Death, Other)
  Sender: FDA-Public Use
  Company Number: BR-ABBOTT-12P-020-0888756-00

PATIENT
  Sex: Male
  Weight: 101 kg

DRUGS (1)
  1. DEPAKOTE ER [Suspect]
     Indication: EPILEPSY
     Route: 048

REACTIONS (14)
  - BRAIN OEDEMA [None]
  - AGITATION [None]
  - UPPER LIMB FRACTURE [None]
  - RENAL FAILURE [None]
  - CONTUSION [None]
  - ARM AMPUTATION [None]
  - PULMONARY HAEMORRHAGE [None]
  - BRAIN DEATH [None]
  - MULTIPLE INJURIES [None]
  - ROAD TRAFFIC ACCIDENT [None]
  - JOINT DISLOCATION [None]
  - CARDIAC ARREST [None]
  - RIB FRACTURE [None]
  - TRAUMATIC LUNG INJURY [None]
